FAERS Safety Report 13542228 (Version 1)
Quarter: 2017Q2

REPORT INFORMATION
  Report Type: Spontaneous
  Country: US (occurrence: US)
  Receive Date: 20170512
  Receipt Date: 20170512
  Transmission Date: 20170830
  Serious: Yes (Death)
  Sender: FDA-Public Use
  Company Number: US-ROCHE-758820

PATIENT
  Sex: Male
  Weight: 75 kg

DRUGS (3)
  1. AVASTIN [Suspect]
     Active Substance: BEVACIZUMAB
     Indication: COLON CANCER
     Route: 042
  2. 5-FU [Concomitant]
     Active Substance: FLUOROURACIL
     Indication: COLON CANCER
     Dosage: PUMP OVER 46 HRS 2400 MG/ME2
     Route: 065
  3. OXALIPLATIN. [Concomitant]
     Active Substance: OXALIPLATIN
     Route: 065

REACTIONS (1)
  - Intestinal perforation [Fatal]
